FAERS Safety Report 19577145 (Version 1)
Quarter: 2021Q3

REPORT INFORMATION
  Report Type: Report from Study
  Country: US (occurrence: US)
  Receive Date: 20210719
  Receipt Date: 20210719
  Transmission Date: 20211014
  Serious: Yes (Hospitalization)
  Sender: FDA-Public Use
  Company Number: US-JNJFOC-20210736133

PATIENT
  Age: 58 Year
  Sex: Male

DRUGS (1)
  1. SELEXIPAG [Suspect]
     Active Substance: SELEXIPAG
     Indication: PULMONARY ARTERIAL HYPERTENSION
     Route: 048
     Dates: start: 20190405

REACTIONS (3)
  - Localised infection [Unknown]
  - Pulmonary embolism [Unknown]
  - Oedema [Unknown]

NARRATIVE: CASE EVENT DATE: 20210709
